FAERS Safety Report 5782141-X (Version None)
Quarter: 2008Q2

REPORT INFORMATION
  Report Type: 
  Country: None (occurrence: None)
  Receive Date: 20080618
  Receipt Date: 20080609
  Transmission Date: 20081010
  Serious: Yes (Hospitalization)
  Sender: FDA-Public Use
  Company Number: 2008BI014552

PATIENT
  Age: 42 Year
  Sex: Female

DRUGS (2)
  1. TYSABRI [Suspect]
     Indication: RELAPSING-REMITTING MULTIPLE SCLEROSIS
     Dosage: QM; IV
     Route: 042
     Dates: start: 20080226, end: 20080522
  2. COPAXONE [Concomitant]

REACTIONS (3)
  - DRUG RESISTANCE [None]
  - PLEURISY [None]
  - SINUSITIS [None]
